FAERS Safety Report 8390581-8 (Version None)
Quarter: 2012Q2

REPORT INFORMATION
  Report Type: 
  Country: None (occurrence: None)
  Receive Date: 20120529
  Receipt Date: 20120516
  Transmission Date: 20120825
  Serious: Yes (Hospitalization)
  Sender: FDA-Public Use
  Company Number: JP-ELI_LILLY_AND_COMPANY-JP201205005897

PATIENT
  Age: 80 Year
  Sex: Male

DRUGS (7)
  1. OMEPRAZOLE [Concomitant]
     Route: 065
  2. FORTEO [Suspect]
     Indication: OSTEOPOROSIS
     Dosage: 20 UG, QD
     Route: 058
     Dates: start: 20120329, end: 20120405
  3. COTRIM [Concomitant]
     Dosage: UNK
     Route: 065
  4. LASIX [Concomitant]
     Dosage: UNK
     Route: 048
  5. PREDNISOLONE [Concomitant]
     Route: 065
  6. TRAMADOL HYDROCHLORIDE AND ACETAMINOPHEN [Concomitant]
     Dosage: UNK
     Route: 048
  7. FOIPAN [Concomitant]
     Dosage: UNK
     Route: 048

REACTIONS (3)
  - ABDOMINAL DISTENSION [None]
  - NAUSEA [None]
  - HYPERKALAEMIA [None]
